FAERS Safety Report 13321180 (Version 1)
Quarter: 2017Q1

REPORT INFORMATION
  Report Type: Spontaneous
  Country: US (occurrence: US)
  Receive Date: 20170310
  Receipt Date: 20170310
  Transmission Date: 20170428
  Serious: Yes (Other)
  Sender: FDA-Public Use
  Company Number: None

PATIENT
  Age: 13 Year
  Sex: Female
  Weight: 44.55 kg

DRUGS (9)
  1. INTUINIV [Concomitant]
  2. VENTOLIN [Concomitant]
     Active Substance: ALBUTEROL SULFATE
  3. CONCERTA [Concomitant]
     Active Substance: METHYLPHENIDATE HYDROCHLORIDE
  4. FLOVENT [Concomitant]
     Active Substance: FLUTICASONE PROPIONATE
  5. ACUTANE [Concomitant]
  6. FLINSTONES CHEWABLE VITAMINS [Concomitant]
  7. ZYRTEC [Concomitant]
     Active Substance: CETIRIZINE HYDROCHLORIDE
  8. SINGULAIR [Suspect]
     Active Substance: MONTELUKAST SODIUM
     Indication: ASTHMA
     Dosage: ?          QUANTITY:1 TABLET(S);?
     Route: 048
  9. DAYTRANA [Concomitant]
     Active Substance: METHYLPHENIDATE

REACTIONS (5)
  - Anxiety disorder [None]
  - Sleep terror [None]
  - Arthralgia [None]
  - Attention deficit/hyperactivity disorder [None]
  - Abnormal behaviour [None]

NARRATIVE: CASE EVENT DATE: 20090318
